FAERS Safety Report 4658673-4 (Version None)
Quarter: 2005Q2

REPORT INFORMATION
  Report Type: 
  Country: None (occurrence: None)
  Receive Date: 20050510
  Receipt Date: 20050510
  Transmission Date: 20051028
  Serious: No
  Sender: FDA-Public Use
  Company Number: None

PATIENT
  Age: 68 Year
  Sex: Female
  Weight: 87.9978 kg

DRUGS (7)
  1. VYTORIN [Suspect]
     Indication: DIABETES MELLITUS NON-INSULIN-DEPENDENT
     Dosage: 1   QHS   ORAL
     Route: 048
     Dates: start: 20050423, end: 20050504
  2. VYTORIN [Suspect]
     Indication: HYPERLIPIDAEMIA
     Dosage: 1   QHS   ORAL
     Route: 048
     Dates: start: 20050423, end: 20050504
  3. AVANDIA [Concomitant]
  4. ALTACE [Concomitant]
  5. FLOMAX [Concomitant]
  6. RELAFEN [Concomitant]
  7. GLYBURIDE [Concomitant]

REACTIONS (4)
  - ASTHENIA [None]
  - DIFFICULTY IN WALKING [None]
  - DYSPNOEA [None]
  - MYALGIA [None]
